FAERS Safety Report 25890282 (Version 1)
Quarter: 2025Q4

REPORT INFORMATION
  Report Type: Spontaneous
  Country: US (occurrence: None)
  Receive Date: 20251007
  Receipt Date: 20251007
  Transmission Date: 20260117
  Serious: Yes (Hospitalization)
  Sender: FDA-CTU
  Company Number: None

PATIENT
  Age: 68 Year
  Sex: Male
  Weight: 69.1 kg

DRUGS (8)
  1. FLUOROURACIL [Suspect]
     Active Substance: FLUOROURACIL
  2. CAMPTOSAR [Suspect]
     Active Substance: IRINOTECAN HYDROCHLORIDE
     Dates: end: 20250911
  3. LEUCOVORIN CALCIUM [Suspect]
     Active Substance: LEUCOVORIN CALCIUM
     Dates: end: 20250911
  4. NIVOLUMAB [Concomitant]
     Active Substance: NIVOLUMAB
     Dates: end: 20250911
  5. INSULIN GLARGINE [Suspect]
     Active Substance: INSULIN GLARGINE
  6. LINAGLIPTIN [Suspect]
     Active Substance: LINAGLIPTIN
  7. METFORMIN [Suspect]
     Active Substance: METFORMIN HYDROCHLORIDE
  8. EMPAGLIFLOZIN [Suspect]
     Active Substance: EMPAGLIFLOZIN

REACTIONS (5)
  - Cystitis [None]
  - Enterovirus test positive [None]
  - Human rhinovirus test positive [None]
  - Abdominal pain lower [None]
  - Neoplasm progression [None]

NARRATIVE: CASE EVENT DATE: 20250915
